FAERS Safety Report 18985003 (Version 2)
Quarter: 2021Q1

REPORT INFORMATION
  Report Type: Spontaneous
  Country: US (occurrence: US)
  Receive Date: 20210309
  Receipt Date: 20210322
  Transmission Date: 20210420
  Serious: Yes (Life-Threatening, Hospitalization, Other)
  Sender: FDA-Public Use
  Company Number: US-ACCORD-219131

PATIENT
  Age: 16 Year
  Sex: Female
  Weight: 44.4 kg

DRUGS (1)
  1. AMLODIPINE [Suspect]
     Active Substance: AMLODIPINE BESYLATE

REACTIONS (9)
  - Cardiac arrest [Recovering/Resolving]
  - Pulseless electrical activity [Recovered/Resolved]
  - Shock [Recovered/Resolved]
  - Anuria [Recovered/Resolved]
  - Acute kidney injury [Recovered/Resolved]
  - Hypotension [Recovering/Resolving]
  - Cerebral haemorrhage [Recovering/Resolving]
  - Intentional overdose [Unknown]
  - Suicide attempt [Unknown]
